FAERS Safety Report 6598317-8 (Version None)
Quarter: 2010Q1

REPORT INFORMATION
  Report Type: 
  Country: None (occurrence: None)
  Receive Date: 20100224
  Receipt Date: 20050314
  Transmission Date: 20100710
  Serious: No
  Sender: FDA-Public Use
  Company Number: US-ALLERGAN-200502071

PATIENT
  Age: 47 Year
  Sex: Female

DRUGS (2)
  1. BOTOX COSMETIC [Suspect]
     Indication: SKIN WRINKLING
     Dosage: INJECTED INTO FOREHEAD
     Route: 030
  2. COLLAGEN [Concomitant]
     Indication: SKIN WRINKLING
     Dosage: INJECTED INTO PERIORAL AREA

REACTIONS (1)
  - DYSGEUSIA [None]
